FAERS Safety Report 4803995-7 (Version None)
Quarter: 2005Q3

REPORT INFORMATION
  Report Type: 
  Country: None (occurrence: None)
  Receive Date: 20050920
  Receipt Date: 20050715
  Transmission Date: 20060218
  Serious: No
  Sender: FDA-Public Use
  Company Number: US-YAMANOUCHI-YPA20050389

PATIENT
  Age: 45 Year
  Sex: Female
  Weight: 115.6672 kg

DRUGS (6)
  1. VESICARE [Suspect]
     Indication: POLLAKIURIA
     Dosage: 5 MG QD PO
     Route: 048
     Dates: start: 20050628
  2. SYNTHROID [Concomitant]
  3. CELEBREX [Concomitant]
  4. CENTRUM [Concomitant]
  5. CALCIUM GLUCONATE [Concomitant]
  6. COLACE [Concomitant]

REACTIONS (4)
  - ABDOMINAL PAIN [None]
  - CONSTIPATION [None]
  - DRUG INEFFECTIVE [None]
  - INSOMNIA [None]
